FAERS Safety Report 7131224-0 (Version None)
Quarter: 2010Q4

REPORT INFORMATION
  Report Type: 
  Country: None (occurrence: None)
  Receive Date: 20101201
  Receipt Date: 20101122
  Transmission Date: 20110411
  Serious: Yes (Other)
  Sender: FDA-Public Use
  Company Number: CA-MERCK-1010USA00095

PATIENT
  Age: 23 Year
  Sex: Male

DRUGS (1)
  1. PROSCAR [Suspect]
     Indication: ALOPECIA
     Route: 048

REACTIONS (8)
  - EMOTIONAL DISORDER [None]
  - ERECTILE DYSFUNCTION [None]
  - FATIGUE [None]
  - GENITAL HYPOAESTHESIA [None]
  - JOINT CREPITATION [None]
  - LIBIDO DECREASED [None]
  - SUICIDAL IDEATION [None]
  - TESTICULAR DISORDER [None]
